FAERS Safety Report 19693198 (Version 1)
Quarter: 2021Q3

REPORT INFORMATION
  Report Type: Report from Study
  Country: US (occurrence: US)
  Receive Date: 20210813
  Receipt Date: 20210813
  Transmission Date: 20211014
  Serious: No
  Sender: FDA-Public Use
  Company Number: NVSC2021US182093

PATIENT
  Sex: Female

DRUGS (1)
  1. PIQRAY [Suspect]
     Active Substance: ALPELISIB
     Indication: PRODUCT USED FOR UNKNOWN INDICATION
     Dosage: 300 MG, UNKNOWN
     Route: 048

REACTIONS (8)
  - Blood glucose increased [Unknown]
  - Eating disorder [Unknown]
  - Nausea [Unknown]
  - Flatulence [Unknown]
  - Diarrhoea [Unknown]
  - Blood creatinine increased [Unknown]
  - Weight decreased [None]
  - Blood sodium decreased [Unknown]
